FAERS Safety Report 22959109 (Version 5)
Quarter: 2023Q4

REPORT INFORMATION
  Report Type: Report from Study
  Country: US (occurrence: US)
  Receive Date: 20230919
  Receipt Date: 20231215
  Transmission Date: 20240110
  Serious: Yes (Hospitalization, Other)
  Sender: FDA-Public Use
  Company Number: US-ABBVIE-5408561

PATIENT
  Age: 59 Year
  Sex: Female

DRUGS (1)
  1. HUMIRA [Suspect]
     Active Substance: ADALIMUMAB
     Indication: Rheumatoid arthritis
     Route: 058
     Dates: end: 201408

REACTIONS (6)
  - Noninfective encephalitis [Recovering/Resolving]
  - Peripheral swelling [Not Recovered/Not Resolved]
  - Myelitis transverse [Unknown]
  - Pain [Unknown]
  - Gait inability [Unknown]
  - Speech disorder [Unknown]

NARRATIVE: CASE EVENT DATE: 20140817
